FAERS Safety Report 18234638 (Version 1)
Quarter: 2020Q3

REPORT INFORMATION
  Report Type: Other
  Country: GB (occurrence: GB)
  Receive Date: 20200904
  Receipt Date: 20200904
  Transmission Date: 20201103
  Serious: Yes (Disabling, Other)
  Sender: FDA-Public Use
  Company Number: GB-APOTEX-2020AP017378

PATIENT
  Age: 69 Year
  Sex: Female

DRUGS (1)
  1. PAROXETINE. [Suspect]
     Active Substance: PAROXETINE
     Indication: STRESS
     Dosage: UNK ONE QUARTER OF 10MG (2 AND HALF MG) THEN HALF(5MG) THEN 10MG
     Route: 048
     Dates: start: 20190220, end: 20190812

REACTIONS (11)
  - Chills [Recovering/Resolving]
  - Musculoskeletal stiffness [Unknown]
  - Influenza like illness [Recovering/Resolving]
  - Feeling hot [Recovering/Resolving]
  - Muscle spasms [Unknown]
  - Disorientation [Recovering/Resolving]
  - Fatigue [Recovering/Resolving]
  - Feeling cold [Recovering/Resolving]
  - Tremor [Recovering/Resolving]
  - Confusional state [Recovering/Resolving]
  - Malaise [Recovering/Resolving]

NARRATIVE: CASE EVENT DATE: 20190220
